FAERS Safety Report 8417411 (Version 2)
Quarter: 2012Q4

REPORT INFORMATION
  Report Type: 
  Country: DE (occurrence: DE)
  Receive Date: 20120221
  Receipt Date: 20121121
  Transmission Date: 20130627
  Serious: Yes (Other)
  Sender: FDA-Public Use
  Company Number: DE-AMGEN-DEUSP2012009356

PATIENT
  Age: 71 Year
  Sex: Female

DRUGS (2)
  1. ENBREL [Suspect]
     Indication: RHEUMATOID ARTHRITIS
     Dosage: 25 mg, 2x/week
     Dates: start: 20090901, end: 201108
  2. ENBREL [Suspect]
     Dosage: UNK

REACTIONS (4)
  - Intra-abdominal haematoma [Unknown]
  - Breast haematoma [Unknown]
  - Haematoma [Unknown]
  - Pruritus [Unknown]
